FAERS Safety Report 18467851 (Version 1)
Quarter: 2020Q4

REPORT INFORMATION
  Report Type: Spontaneous
  Country: US (occurrence: US)
  Receive Date: 20201105
  Receipt Date: 20201105
  Transmission Date: 20210114
  Serious: Yes (Other)
  Sender: FDA-Public Use
  Company Number: US-ELI_LILLY_AND_COMPANY-US201909012000

PATIENT

DRUGS (2)
  1. TRULICITY [Suspect]
     Active Substance: DULAGLUTIDE
     Indication: PRODUCT USED FOR UNKNOWN INDICATION
     Dosage: UNK, UNKNOWN
     Route: 065
  2. METFORMIN [Concomitant]
     Active Substance: METFORMIN HYDROCHLORIDE
     Indication: PRODUCT USED FOR UNKNOWN INDICATION

REACTIONS (29)
  - Anxiety [Unknown]
  - Hypoaesthesia [Unknown]
  - Coagulopathy [Unknown]
  - Hypertension [Unknown]
  - Lumbar vertebral fracture [Unknown]
  - Cerebrovascular accident [Unknown]
  - Cardiac failure congestive [Unknown]
  - Loss of consciousness [Unknown]
  - Skin laceration [Unknown]
  - Angina unstable [Unknown]
  - Myocardial infarction [Unknown]
  - Obesity [Unknown]
  - Nicotine dependence [Unknown]
  - Hypokalaemia [Unknown]
  - Fall [Unknown]
  - Musculoskeletal discomfort [Unknown]
  - Dermatitis [Unknown]
  - Gout [Unknown]
  - Tremor [Unknown]
  - Atrial fibrillation [Unknown]
  - Chronic obstructive pulmonary disease [Unknown]
  - Ischaemic cardiomyopathy [Unknown]
  - Hypomagnesaemia [Unknown]
  - Major depression [Unknown]
  - Aspartate aminotransferase increased [Unknown]
  - Chest pain [Unknown]
  - Insomnia [Unknown]
  - Hyperlipidaemia [Unknown]
  - Gastrooesophageal reflux disease [Unknown]
